FAERS Safety Report 17652647 (Version 1)
Quarter: 2020Q2

REPORT INFORMATION
  Report Type: Spontaneous
  Country: US (occurrence: US)
  Receive Date: 20200409
  Receipt Date: 20200409
  Transmission Date: 20200713
  Serious: No
  Sender: FDA-Public Use
  Company Number: US-TEVA-2020-US-1220416

PATIENT
  Sex: Female

DRUGS (14)
  1. CLONAZEPAM. [Concomitant]
     Active Substance: CLONAZEPAM
  2. CARAFATE [Concomitant]
     Active Substance: SUCRALFATE
  3. BACLOFEN. [Concomitant]
     Active Substance: BACLOFEN
  4. BENADRYL [Concomitant]
     Active Substance: DIPHENHYDRAMINE HYDROCHLORIDE
  5. OCREVUS [Concomitant]
     Active Substance: OCRELIZUMAB
  6. SOLU-MEDROL [Concomitant]
     Active Substance: METHYLPREDNISOLONE SODIUM SUCCINATE
  7. PRISTIQ EXTENDED-RELEASE [Concomitant]
     Active Substance: DESVENLAFAXINE SUCCINATE
  8. OXYCODONE [Concomitant]
     Active Substance: OXYCODONE
  9. ABILIFY [Concomitant]
     Active Substance: ARIPIPRAZOLE
  10. NEXIUM [Concomitant]
     Active Substance: ESOMEPRAZOLE MAGNESIUM
  11. CRESTOR [Concomitant]
     Active Substance: ROSUVASTATIN CALCIUM
  12. COPAXONE [Suspect]
     Active Substance: GLATIRAMER ACETATE
     Indication: MULTIPLE SCLEROSIS
     Dosage: FORM STRENGTH: UNKNOWN
     Route: 065
  13. LAMICTAL [Concomitant]
     Active Substance: LAMOTRIGINE
  14. NORVASC [Concomitant]
     Active Substance: AMLODIPINE BESYLATE

REACTIONS (1)
  - Injection site pain [Unknown]
